FAERS Safety Report 9518427 (Version 2)
Quarter: 2014Q1

REPORT INFORMATION
  Report Type: Spontaneous
  Country: US (occurrence: None)
  Receive Date: 20130305
  Receipt Date: 20140306
  Transmission Date: 20141002
  Serious: Yes (Other)
  Sender: FDA-Public Use
  Company Number: 163-21880-12081104

PATIENT
  Age: 86 Year
  Sex: Female

DRUGS (10)
  1. REVLIMID [Suspect]
     Indication: 5Q MINUS SYNDROME
     Dosage: 10 MG, 1 IN 1 D, PO
     Route: 048
     Dates: start: 20091104
  2. BENADRYL (DIPHENHYDRAMINE HYDROCHLORIDE) (UNKNOWN) [Concomitant]
  3. FISH OIL (FISH OIL) (UNKNOWN) [Concomitant]
  4. OMEGA-3 KRILL OIL (FISH OIL) (UNKNOWN) [Concomitant]
  5. BIOTIN (BIOTIN) (UNKNOWN) [Concomitant]
  6. CALCIUM (CALCIUM) (UNKNOWN) [Concomitant]
  7. CHOLECALCIFEROL (COLECALCIFEROL) (UNKNOWN) [Concomitant]
  8. MVI (MVI) (UNKNOWN) [Concomitant]
  9. VITAMIN B COMPLEX (B-KOMPLEX ^LECIVA^) (UNKNOWN) [Concomitant]
  10. VITAMIN B12 (CYANOCOBALAMIN) (UNKNOWN) [Concomitant]

REACTIONS (5)
  - Haemoglobin decreased [None]
  - Neutrophil count decreased [None]
  - White blood cell count decreased [None]
  - Platelet count decreased [None]
  - No therapeutic response [None]
